FAERS Safety Report 6671019-5 (Version None)
Quarter: 2010Q2

REPORT INFORMATION
  Report Type: 
  Country: None (occurrence: None)
  Receive Date: 20100407
  Receipt Date: 20100329
  Transmission Date: 20101027
  Serious: Yes (Hospitalization)
  Sender: FDA-Public Use
  Company Number: PHHY2010US13311

PATIENT
  Sex: Female

DRUGS (3)
  1. EXJADE [Suspect]
     Indication: MYELOFIBROSIS
     Dosage: 500 MG, TID
     Route: 048
  2. EXJADE [Suspect]
     Indication: IRON OVERLOAD
  3. CHEMOTHERAPEUTICS NOS [Concomitant]

REACTIONS (3)
  - ACUTE MYELOID LEUKAEMIA [None]
  - BONE MARROW TRANSPLANT [None]
  - NEUTROPENIA [None]
